FAERS Safety Report 10647569 (Version 3)
Quarter: 2015Q1

REPORT INFORMATION
  Report Type: Spontaneous
  Country: US (occurrence: US)
  Receive Date: 20141211
  Receipt Date: 20150313
  Transmission Date: 20150720
  Serious: Yes (Hospitalization)
  Sender: FDA-Public Use
  Company Number: US-ALLERGAN-1424878US

PATIENT
  Age: 52 Year
  Sex: Female

DRUGS (6)
  1. ESTROGEN [Concomitant]
     Active Substance: ESTRONE\SUS SCROFA OVARY
     Dosage: UNK
     Dates: start: 2011
  2. BOTOX COSMETIC [Suspect]
     Active Substance: ONABOTULINUMTOXINA
     Indication: SKIN WRINKLING
  3. ALEVE [Concomitant]
     Active Substance: NAPROXEN SODIUM
     Indication: ARTHRITIS
     Dosage: UNK UNK, PRN
     Route: 048
  4. BOTOX COSMETIC [Suspect]
     Active Substance: ONABOTULINUMTOXINA
     Indication: SKIN WRINKLING
  5. BOTOX COSMETIC [Suspect]
     Active Substance: ONABOTULINUMTOXINA
     Indication: SKIN WRINKLING
     Dosage: 40 UNITS, SINGLE
     Route: 030
     Dates: start: 20141201, end: 20141201
  6. BOTOX COSMETIC [Suspect]
     Active Substance: ONABOTULINUMTOXINA
     Indication: SKIN WRINKLING
     Dosage: 4 UNITS, SINGLE
     Route: 030
     Dates: start: 20141201, end: 20141201

REACTIONS (16)
  - Palpitations [Recovered/Resolved]
  - Tachycardia [Recovered/Resolved]
  - Dysphonia [Not Recovered/Not Resolved]
  - Dry eye [Recovered/Resolved]
  - Off label use [Unknown]
  - Dyspnoea [Unknown]
  - Rebound effect [Recovering/Resolving]
  - Dehydration [Recovered/Resolved]
  - Rash [Recovered/Resolved]
  - Pharyngeal oedema [Recovering/Resolving]
  - Hot flush [Recovered/Resolved]
  - Rash [Recovered/Resolved]
  - Dysphagia [Recovering/Resolving]
  - Dry mouth [Recovered/Resolved]
  - Swollen tongue [Unknown]
  - Lip swelling [Unknown]

NARRATIVE: CASE EVENT DATE: 20141201
